FAERS Safety Report 20458837 (Version 1)
Quarter: 2022Q1

REPORT INFORMATION
  Report Type: Report from Study
  Country: MX (occurrence: MX)
  Receive Date: 20220211
  Receipt Date: 20220211
  Transmission Date: 20220423
  Serious: Yes (Other)
  Sender: FDA-Public Use
  Company Number: MX-NOVARTISPH-PHHY2018MX000932

PATIENT
  Sex: Female
  Weight: 65 kg

DRUGS (3)
  1. ENTRESTO [Suspect]
     Active Substance: SACUBITRIL\VALSARTAN
     Indication: Cardiac disorder
     Dosage: 50 MG
     Route: 048
     Dates: start: 2016
  2. ENTRESTO [Suspect]
     Active Substance: SACUBITRIL\VALSARTAN
     Indication: Cardiac failure
     Dosage: 1 DF, BID (HALF IN MORNING AND HALF AT NIGHT
     Route: 048
     Dates: start: 20180416
  3. ENTRESTO [Suspect]
     Active Substance: SACUBITRIL\VALSARTAN
     Dosage: 0.5 DOSAGE FORM, BID (EVERY 12 HOURS)
     Route: 048
     Dates: start: 20211021

REACTIONS (6)
  - Breast cancer stage III [Not Recovered/Not Resolved]
  - Infarction [Recovered/Resolved]
  - Renal disorder [Not Recovered/Not Resolved]
  - Blood creatinine increased [Unknown]
  - Product use in unapproved indication [Unknown]
  - Wrong technique in product usage process [Unknown]

NARRATIVE: CASE EVENT DATE: 20180101
